FAERS Safety Report 7479053-2 (Version None)
Quarter: 2011Q2

REPORT INFORMATION
  Report Type: 
  Country: None (occurrence: None)
  Receive Date: 20110513
  Receipt Date: 20110502
  Transmission Date: 20111010
  Serious: Yes (Other)
  Sender: FDA-Public Use
  Company Number: ES-SANOFI-AVENTIS-2011SA024024

PATIENT
  Age: 38 Year
  Sex: Female

DRUGS (4)
  1. APIDRA SOLOSTAR [Suspect]
     Indication: TYPE 1 DIABETES MELLITUS
  2. LANTUS [Suspect]
     Indication: TYPE 1 DIABETES MELLITUS
  3. LANTUS [Suspect]
  4. LANTUS [Suspect]
     Indication: TYPE 1 DIABETES MELLITUS

REACTIONS (1)
  - WRONG DRUG ADMINISTERED [None]
